FAERS Safety Report 24765822 (Version 1)
Quarter: 2024Q4

REPORT INFORMATION
  Report Type: Spontaneous
  Country: US (occurrence: US)
  Receive Date: 20241223
  Receipt Date: 20241223
  Transmission Date: 20250115
  Serious: Yes (Other)
  Sender: ALEXION PHARMACEUTICALS
  Company Number: US-ASTRAZENECA-202412USA015059US

PATIENT
  Age: 75 Year

DRUGS (19)
  1. TEZSPIRE [Suspect]
     Active Substance: TEZEPELUMAB-EKKO
     Route: 065
  2. TEZSPIRE [Suspect]
     Active Substance: TEZEPELUMAB-EKKO
     Route: 065
  3. TEZSPIRE [Suspect]
     Active Substance: TEZEPELUMAB-EKKO
     Route: 065
  4. TEZSPIRE [Suspect]
     Active Substance: TEZEPELUMAB-EKKO
     Route: 065
  5. RELUGOLIX [Suspect]
     Active Substance: RELUGOLIX
     Indication: Prostate cancer
     Dosage: 360 MILLIGRAM
  6. RELUGOLIX [Suspect]
     Active Substance: RELUGOLIX
     Dosage: 360 MILLIGRAM
     Route: 048
  7. RELUGOLIX [Suspect]
     Active Substance: RELUGOLIX
     Dosage: 120 MILLIGRAM, QD
     Route: 048
  8. RELUGOLIX [Suspect]
     Active Substance: RELUGOLIX
     Dosage: 120 MILLIGRAM, QD
  9. RELUGOLIX [Suspect]
     Active Substance: RELUGOLIX
     Dosage: UNK MILLIGRAM
  10. RELUGOLIX [Suspect]
     Active Substance: RELUGOLIX
     Dosage: UNK MILLIGRAM
     Route: 048
  11. RELUGOLIX [Suspect]
     Active Substance: RELUGOLIX
     Dosage: UNK MILLIGRAM
     Route: 048
  12. RELUGOLIX [Suspect]
     Active Substance: RELUGOLIX
     Dosage: UNK MILLIGRAM
  13. RELUGOLIX [Suspect]
     Active Substance: RELUGOLIX
     Dosage: UNK MILLIGRAM
  14. RELUGOLIX [Suspect]
     Active Substance: RELUGOLIX
     Dosage: UNK MILLIGRAM
     Route: 048
  15. ROPINIROLE HYDROCHLORIDE [Suspect]
     Active Substance: ROPINIROLE HYDROCHLORIDE
     Indication: Neoplasm malignant
     Dosage: 360 MILLIGRAM, SINGLE
     Route: 065
  16. ROPINIROLE HYDROCHLORIDE [Suspect]
     Active Substance: ROPINIROLE HYDROCHLORIDE
     Indication: Parkinson^s disease
     Dosage: 360 MILLIGRAM, SINGLE
     Route: 065
  17. BUMEX [Suspect]
     Active Substance: BUMETANIDE
     Route: 065
  18. BUMEX [Suspect]
     Active Substance: BUMETANIDE
     Route: 065
  19. OXYGEN [Concomitant]
     Active Substance: OXYGEN

REACTIONS (24)
  - Pericardial effusion [Unknown]
  - Renal failure [Unknown]
  - Cardiac failure congestive [Unknown]
  - Heart rate abnormal [Unknown]
  - Pulmonary pain [Unknown]
  - Dehydration [Unknown]
  - Pollakiuria [Unknown]
  - Illness [Unknown]
  - Joint injury [Unknown]
  - Skin laceration [Unknown]
  - Dyspnoea [Unknown]
  - Depressed mood [Unknown]
  - Myalgia [Recovered/Resolved]
  - Malaise [Unknown]
  - Asthenia [Unknown]
  - Arthralgia [Not Recovered/Not Resolved]
  - Gynaecomastia [Unknown]
  - Headache [Unknown]
  - Catheterisation cardiac [Unknown]
  - Myalgia [Recovered/Resolved]
  - Angular cheilitis [Recovered/Resolved]
  - Dehydration [Unknown]
  - Injury [Unknown]
  - Pulmonary pain [Unknown]
